FAERS Safety Report 4675686-7 (Version None)
Quarter: 2005Q2

REPORT INFORMATION
  Report Type: 
  Country: None (occurrence: None)
  Receive Date: 20050527
  Receipt Date: 20050119
  Transmission Date: 20051028
  Serious: Yes (Other)
  Sender: FDA-Public Use
  Company Number: US-BRISTOL-MYERS SQUIBB COMPANY-12831376

PATIENT
  Age: 57 Year
  Sex: Female

DRUGS (10)
  1. ERBITUX [Suspect]
     Indication: COLORECTAL CANCER METASTATIC
     Dosage: THERAPY START DATE 24-AUG-04 (800 MG) AND CONTINUING (500 MG WEEKLY)
     Route: 042
     Dates: start: 20040101
  2. BENADRYL [Concomitant]
     Indication: PREMEDICATION
     Dosage: START DATE 24-AUG-04 AND CONTINUING
     Route: 042
     Dates: start: 20040101
  3. COUMADIN [Concomitant]
  4. ZOLOFT [Concomitant]
  5. OXYCODONE HCL [Concomitant]
     Dosage: ^OXYCODONE 5^ 1-2 EVERY 3-4 HOURS AS NEEDED
  6. NEURONTIN [Concomitant]
  7. PERI-COLACE [Concomitant]
  8. OXYCONTIN [Concomitant]
  9. AMBIEN [Concomitant]
     Dosage: 10 MG AT BEDTIME AS NEEDED
  10. ATARAX [Concomitant]

REACTIONS (2)
  - HAIR GROWTH ABNORMAL [None]
  - METASTASES TO SPINE [None]
